FAERS Safety Report 8970787 (Version 1)
Quarter: 2012Q4

REPORT INFORMATION
  Report Type: 
  Country: US (occurrence: US)
  Receive Date: 20121218
  Receipt Date: 20121218
  Transmission Date: 20130627
  Serious: Yes (Hospitalization)
  Sender: FDA-Public Use
  Company Number: US-JNJFOC-20121204358

PATIENT
  Sex: Female

DRUGS (2)
  1. XARELTO [Suspect]
     Indication: PRODUCT USED FOR UNKNOWN INDICATION
     Route: 048
  2. ANTIARRHYTHMIC [Concomitant]
     Indication: ARRHYTHMIA

REACTIONS (3)
  - Vision blurred [Unknown]
  - Dizziness [Unknown]
  - Syncope [Unknown]
